FAERS Safety Report 5805214-1 (Version None)
Quarter: 2008Q3

REPORT INFORMATION
  Report Type: 
  Country: None (occurrence: None)
  Receive Date: 20080707
  Receipt Date: 20080620
  Transmission Date: 20090109
  Serious: Yes (Other)
  Sender: FDA-Public Use
  Company Number: DSA_62136_2008

PATIENT
  Sex: Male
  Weight: 15.8759 kg

DRUGS (3)
  1. DIASTAT [Suspect]
     Indication: FEBRILE CONVULSION
     Dosage: (2.5 MG PRN RECTAL)
     Route: 054
     Dates: start: 20080501
  2. MOTRIN [Concomitant]
  3. TYLENOL [Concomitant]

REACTIONS (6)
  - COUGH [None]
  - DRUG ADMINISTRATION ERROR [None]
  - PARONYCHIA [None]
  - PHARMACEUTICAL PRODUCT COMPLAINT [None]
  - PYREXIA [None]
  - SNEEZING [None]
